FAERS Safety Report 5720471-8 (Version None)
Quarter: 2008Q2

REPORT INFORMATION
  Report Type: 
  Country: None (occurrence: None)
  Receive Date: 20080428
  Receipt Date: 20080418
  Transmission Date: 20081010
  Serious: Yes (Other)
  Sender: FDA-Public Use
  Company Number: BB-ABBOTT-08P-208-0448218-00

PATIENT
  Age: 6 Year
  Sex: Female

DRUGS (1)
  1. DEPAKENE [Suspect]
     Indication: CONVULSION
     Route: 065

REACTIONS (1)
  - LEARNING DISABILITY [None]
